FAERS Safety Report 7513293-9 (Version None)
Quarter: 2011Q2

REPORT INFORMATION
  Report Type: 
  Country: None (occurrence: None)
  Receive Date: 20110531
  Receipt Date: 20110524
  Transmission Date: 20111010
  Serious: Yes (Hospitalization)
  Sender: FDA-Public Use
  Company Number: FR-SANOFI-AVENTIS-2011SA033693

PATIENT
  Age: 83 Year
  Sex: Female

DRUGS (13)
  1. EXELON [Suspect]
     Route: 062
     Dates: end: 20110406
  2. LANTUS [Concomitant]
  3. PANTOPRAZOLE SODIUM [Concomitant]
  4. POTASSIUM CHLORIDE [Suspect]
     Route: 048
     Dates: end: 20110325
  5. UVEDOSE [Concomitant]
  6. MODOPAR [Suspect]
     Route: 048
  7. LASIX [Suspect]
     Route: 048
     Dates: end: 20110316
  8. MEMANTINE HYDROCHLORIDE [Suspect]
     Route: 048
     Dates: end: 20110406
  9. OROCAL D(3) [Concomitant]
     Dates: end: 20110325
  10. IMOVANE [Suspect]
     Route: 048
     Dates: end: 20110316
  11. ASPIRIN [Concomitant]
     Route: 048
  12. ATORVASTATIN [Concomitant]
     Route: 048
  13. HUMALOG [Concomitant]

REACTIONS (2)
  - HEPATOCELLULAR INJURY [None]
  - PANCREATITIS ACUTE [None]
